FAERS Safety Report 8389253-5 (Version None)
Quarter: 2012Q2

REPORT INFORMATION
  Report Type: 
  Country: None (occurrence: None)
  Receive Date: 20120528
  Receipt Date: 20120516
  Transmission Date: 20120825
  Serious: Yes (Other)
  Sender: FDA-Public Use
  Company Number: US-BAYER-2012-049373

PATIENT
  Sex: Male

DRUGS (1)
  1. ASPIRIN [Suspect]

REACTIONS (4)
  - HYPERSENSITIVITY [None]
  - SWELLING [None]
  - RASH [None]
  - URTICARIA [None]
